FAERS Safety Report 9724682 (Version 2)
Quarter: 2014Q1

REPORT INFORMATION
  Report Type: Spontaneous
  Country: GB (occurrence: GB)
  Receive Date: 20131202
  Receipt Date: 20140319
  Transmission Date: 20141002
  Serious: Yes (Other)
  Sender: FDA-Public Use
  Company Number: GB-WATSON-2013-22050

PATIENT
  Age: 43 Year
  Sex: Female
  Weight: 102 kg

DRUGS (2)
  1. CITALOPRAM (UNKNOWN) [Suspect]
     Indication: AFFECTIVE DISORDER
     Dosage: 20 MG, DAILY
     Route: 048
     Dates: start: 20121220
  2. LEVOTHYROXINE [Concomitant]
     Indication: HYPOTHYROIDISM
     Dosage: 200 MICGROGRAMS DAILY
     Route: 048

REACTIONS (1)
  - Hyperprolactinaemia [Not Recovered/Not Resolved]
